FAERS Safety Report 21311779 (Version 1)
Quarter: 2022Q3

REPORT INFORMATION
  Report Type: Spontaneous
  Country: US (occurrence: None)
  Receive Date: 20220909
  Receipt Date: 20220909
  Transmission Date: 20221027
  Serious: No
  Sender: FDA-Public Use
  Company Number: US-ARIS GLOBAL-202203-0438

PATIENT
  Age: 72 Year
  Sex: Female

DRUGS (7)
  1. OXERVATE [Suspect]
     Active Substance: CENEGERMIN-BKBJ
     Indication: Neurotrophic keratopathy
     Route: 047
     Dates: start: 20220302
  2. OXERVATE [Suspect]
     Active Substance: CENEGERMIN-BKBJ
     Indication: Hypoaesthesia eye
  3. ALREX [Concomitant]
     Active Substance: LOTEPREDNOL ETABONATE
  4. SYSTANE (HYPROMELLOSE 2910 (4000 MPA.S)) [Concomitant]
     Active Substance: HYPROMELLOSE 2910 (4000 MPA.S)
     Dosage: 0.3%-0.4%
  5. VITAMINS [Concomitant]
     Active Substance: VITAMINS
  6. VITAMIN A [Concomitant]
     Active Substance: VITAMIN A
     Dosage: 10000 UNIT
  7. XIIDRA [Concomitant]
     Active Substance: LIFITEGRAST

REACTIONS (3)
  - Eye pain [Unknown]
  - Dizziness [Not Recovered/Not Resolved]
  - Dizziness [Unknown]

NARRATIVE: CASE EVENT DATE: 20220310
